FAERS Safety Report 5517300-4 (Version None)
Quarter: 2007Q4

REPORT INFORMATION
  Report Type: 
  Country: None (occurrence: None)
  Receive Date: 20071114
  Receipt Date: 20071009
  Transmission Date: 20080405
  Serious: No
  Sender: FDA-Public Use
  Company Number: A0686521A

PATIENT
  Age: 45 Year
  Sex: Female

DRUGS (2)
  1. COMMIT [Suspect]
  2. NICOTINE [Suspect]

REACTIONS (4)
  - FLATULENCE [None]
  - MOUTH ULCERATION [None]
  - ORAL PAIN [None]
  - STOMATITIS [None]
